FAERS Safety Report 5349286-X (Version None)
Quarter: 2007Q2

REPORT INFORMATION
  Report Type: 
  Country: None (occurrence: None)
  Receive Date: 20070607
  Receipt Date: 20070601
  Transmission Date: 20071010
  Serious: Yes (Hospitalization)
  Sender: FDA-Public Use
  Company Number: A0654354A

PATIENT
  Age: 52 Year
  Sex: Female

DRUGS (1)
  1. LAMICTAL [Suspect]

REACTIONS (5)
  - DELIRIUM [None]
  - DRUG TOXICITY [None]
  - MEMORY IMPAIRMENT [None]
  - RASH [None]
  - SUICIDE ATTEMPT [None]
